FAERS Safety Report 12444448 (Version 1)
Quarter: 2016Q2

REPORT INFORMATION
  Report Type: Spontaneous
  Country: US (occurrence: US)
  Receive Date: 20160607
  Receipt Date: 20160607
  Transmission Date: 20160815
  Serious: No
  Sender: FDA-Public Use
  Company Number: US-PERRIGO-15US005335

PATIENT
  Age: 50 Year
  Sex: Female
  Weight: 63.39 kg

DRUGS (1)
  1. MINOXIDIL. [Suspect]
     Active Substance: MINOXIDIL
     Indication: ALOPECIA
     Dosage: SMALL AMOUNT, QD
     Route: 061
     Dates: start: 20150514

REACTIONS (2)
  - Hair colour changes [Unknown]
  - Off label use [Unknown]

NARRATIVE: CASE EVENT DATE: 20150514
